FAERS Safety Report 4817354-4 (Version None)
Quarter: 2005Q4

REPORT INFORMATION
  Report Type: 
  Country: None (occurrence: None)
  Receive Date: 20051031
  Receipt Date: 20051018
  Transmission Date: 20060501
  Serious: Yes (Other)
  Sender: FDA-Public Use
  Company Number: 2005143564

PATIENT
  Age: 53 Year
  Sex: Female
  Weight: 81.6475 kg

DRUGS (6)
  1. SUDAFED SINUS NIGHTTIME PLUS PAIN RELIEF (DIPHENYDRAMINE, PARACETAMOL, [Suspect]
     Indication: SINUS HEADACHE
     Dosage: 3 TABLETS 1 TIME A DAY, ORAL
     Route: 048
  2. PROGESTERONE [Concomitant]
  3. ASPIRIN [Concomitant]
  4. ESTRADIOL [Concomitant]
  5. BUPROPION HYDROCHLORIDE [Concomitant]
  6. MULTIVITAMINS (ASCORBIC ACID, ERGOCALCIFEROL, FOLIC ACID, NICTINAMIDE, [Concomitant]

REACTIONS (1)
  - DRUG DEPENDENCE [None]
